FAERS Safety Report 9638681 (Version 2)
Quarter: 2014Q1

REPORT INFORMATION
  Report Type: Spontaneous
  Country: US (occurrence: US)
  Receive Date: 20131022
  Receipt Date: 20140122
  Transmission Date: 20141002
  Serious: No
  Sender: FDA-Public Use
  Company Number: US-BRISTOL-MYERS SQUIBB COMPANY-19340777

PATIENT
  Age: 76 Year
  Sex: Female
  Weight: 103.4 kg

DRUGS (16)
  1. ELIQUIS [Suspect]
     Indication: COAGULOPATHY
     Dosage: DRUG RESTART
     Route: 048
     Dates: start: 20130901
  2. ELIQUIS [Suspect]
     Indication: ATRIAL FIBRILLATION
     Dosage: DRUG RESTART
     Route: 048
     Dates: start: 20130901
  3. SPIRONOLACTONE [Concomitant]
     Dosage: IN THE MRNG?TAB
  4. CARVEDILOL [Concomitant]
  5. ZESTRIL [Concomitant]
  6. AMLODIPINE [Concomitant]
     Dosage: TAB IN THE MRNG
  7. ZETIA [Concomitant]
  8. SERTRALINE [Concomitant]
  9. AMIODARONE [Concomitant]
     Dosage: EVERY EVENING
  10. METFORMIN [Concomitant]
     Dosage: ONE IN THE MORNING, 2 AT NOON
  11. FISH OIL [Concomitant]
  12. VITAMIN E [Concomitant]
     Dosage: 1DF=400 UNITS
  13. VITAMIN D3 [Concomitant]
     Dosage: 1DF=5,000 UNITS
  14. CALCIUM [Concomitant]
  15. MULTIVITAMIN [Concomitant]
  16. XANAX [Concomitant]

REACTIONS (8)
  - Diarrhoea [Recovered/Resolved]
  - Hypotension [Recovered/Resolved]
  - Heart rate decreased [Recovered/Resolved]
  - Asthenia [Unknown]
  - Dizziness [Unknown]
  - Headache [Unknown]
  - Abdominal pain upper [Not Recovered/Not Resolved]
  - Flatulence [Unknown]
